FAERS Safety Report 8204550-1 (Version None)
Quarter: 2012Q1

REPORT INFORMATION
  Report Type: 
  Country: None (occurrence: None)
  Receive Date: 20120313
  Receipt Date: 20120309
  Transmission Date: 20120608
  Serious: Yes (Life-Threatening, Hospitalization)
  Sender: FDA-Public Use
  Company Number: ES-PFIZER INC-2012062862

PATIENT
  Age: 75 Year
  Sex: Male

DRUGS (6)
  1. ENALAPRIL [Concomitant]
     Indication: HYPERTENSION
     Dosage: 2.5 MG, 1X/DAY
     Route: 048
     Dates: start: 20061101, end: 20110614
  2. CARVEDILOL [Concomitant]
     Dosage: 6.25 MG, 1X/DAY
     Route: 048
     Dates: start: 20080301, end: 20110614
  3. DIGOXIN [Interacting]
     Indication: ATRIAL FIBRILLATION
     Dosage: 1.75 MG, WEEKLY
     Route: 048
     Dates: start: 20061201, end: 20110614
  4. SINTROM [Concomitant]
     Dosage: 1 MG, UNK
     Route: 048
  5. ALDACTONE [Suspect]
     Indication: HEPATIC CIRRHOSIS
     Dosage: 100 MG, 1X/DAY
     Route: 048
     Dates: start: 20081201, end: 20110614
  6. PRAVASTATIN [Concomitant]
     Dosage: 10 MG, 1X/DAY
     Route: 048
     Dates: start: 20070701, end: 20110614

REACTIONS (4)
  - DRUG INTERACTION [None]
  - TOXICITY TO VARIOUS AGENTS [None]
  - CARDIAC ARREST [None]
  - BRADYCARDIA [None]
